FAERS Safety Report 5696128-9 (Version None)
Quarter: 2008Q2

REPORT INFORMATION
  Report Type: 
  Country: None (occurrence: None)
  Receive Date: 20080407
  Receipt Date: 20080327
  Transmission Date: 20081010
  Serious: Yes (Hospitalization)
  Sender: FDA-Public Use
  Company Number: FR-ROCHE-554538

PATIENT
  Age: 17 Year
  Sex: Female

DRUGS (4)
  1. CELLCEPT [Suspect]
     Indication: WEGENER'S GRANULOMATOSIS
     Route: 048
     Dates: start: 20061113
  2. CELLCEPT [Suspect]
     Dosage: DOSAGE REGIMEN REPORTED AS 1.5 GRAM X 2.
     Route: 048
     Dates: start: 20060201
  3. CELLCEPT [Suspect]
     Dosage: DOSAGE REGIMEN REPORTED AS 2 GRAM X 2.
     Route: 048
  4. CHARCOAL [Concomitant]
     Dosage: GIVEN 3 DOSES.
     Dates: start: 20061113

REACTIONS (6)
  - ABDOMINAL PAIN [None]
  - DIARRHOEA [None]
  - OVERDOSE [None]
  - POISONING DELIBERATE [None]
  - SOMNOLENCE [None]
  - VOMITING [None]
